FAERS Safety Report 20509795 (Version 2)
Quarter: 2022Q1

REPORT INFORMATION
  Report Type: Spontaneous
  Country: US (occurrence: US)
  Receive Date: 20220224
  Receipt Date: 20220303
  Transmission Date: 20220423
  Serious: No
  Sender: FDA-Public Use
  Company Number: US-AMGEN-USASP2022031665

PATIENT
  Age: 56 Year
  Sex: Female

DRUGS (5)
  1. OTEZLA [Suspect]
     Active Substance: APREMILAST
     Indication: Psoriatic arthropathy
     Dosage: 10 MILLIGRAM FOR TWO DAYS
     Route: 048
     Dates: start: 20220126
  2. OTEZLA [Suspect]
     Active Substance: APREMILAST
     Dosage: 20 MILLIGRAM FOR TWO DAYS
     Route: 048
  3. OTEZLA [Suspect]
     Active Substance: APREMILAST
     Dosage: 30 MILLIGRAM, BID
     Route: 048
     Dates: end: 2022
  4. SAVELLA [Concomitant]
     Active Substance: MILNACIPRAN HYDROCHLORIDE
     Dosage: 25 MILLIGRAM
  5. CYCLOBENZAPRINE [Concomitant]
     Active Substance: CYCLOBENZAPRINE
     Dosage: 10 MILLIGRAM

REACTIONS (7)
  - Headache [Unknown]
  - Gastrointestinal disorder [Unknown]
  - Heart rate increased [Unknown]
  - Feeling abnormal [Unknown]
  - Depression [Unknown]
  - Abnormal behaviour [Unknown]
  - Weight decreased [Unknown]

NARRATIVE: CASE EVENT DATE: 20220127
